FAERS Safety Report 16237275 (Version 2)
Quarter: 2019Q3

REPORT INFORMATION
  Report Type: Spontaneous
  Country: DE (occurrence: DE)
  Receive Date: 20190425
  Receipt Date: 20190702
  Transmission Date: 20191004
  Serious: Yes (Other)
  Sender: FDA-Public Use
  Company Number: DE-SA-2019SA113804

PATIENT
  Age: 80 Year
  Sex: Male

DRUGS (13)
  1. PRALUENT [Suspect]
     Active Substance: ALIROCUMAB
     Dosage: 150 MG, QOW
     Route: 058
     Dates: start: 20190101, end: 20190115
  2. BISOHEXAL [Concomitant]
     Active Substance: BISOPROLOL FUMARATE
     Dosage: 5 MG, QD
  3. OMACOR [Concomitant]
     Active Substance: OMEGA-3-ACID ETHYL ESTERS
     Dosage: 1 DF, QD
  4. PRALUENT [Suspect]
     Active Substance: ALIROCUMAB
     Indication: HYPERCHOLESTEROLAEMIA
     Dosage: 150 MG, UNK
     Route: 058
     Dates: start: 20180110, end: 2018
  5. ALLOPURINOL. [Concomitant]
     Active Substance: ALLOPURINOL
     Dosage: 300 MG, QD
  6. DEKRISTOL [Concomitant]
     Active Substance: CHOLECALCIFEROL
     Dosage: 2000 IU, QW
  7. NITROLINGUAL [Concomitant]
     Active Substance: NITROGLYCERIN
     Dosage: IF NECESSARY
  8. ENAHEXAL [ENALAPRIL MALEATE] [Concomitant]
     Dosage: 10 MG, QD
  9. TORASEMID [Concomitant]
     Active Substance: TORSEMIDE
     Dosage: 5 MG, QD
  10. ASPIRIN. [Concomitant]
     Active Substance: ASPIRIN
     Dosage: 100 MG, QD
  11. PROMETHAZINE [Concomitant]
     Active Substance: PROMETHAZINE HYDROCHLORIDE
     Dosage: IF NECESSARY
  12. FOSTER NEXTHALER [Concomitant]
     Dosage: IF NECESSARY
  13. RANEXA [Concomitant]
     Active Substance: RANOLAZINE
     Dosage: 1000 MG, QD

REACTIONS (5)
  - Pain [Recovered/Resolved]
  - Peripheral swelling [Recovering/Resolving]
  - Arthralgia [Recovered/Resolved]
  - Gross motor delay [Recovering/Resolving]
  - Pain in extremity [Recovering/Resolving]

NARRATIVE: CASE EVENT DATE: 2018
